FAERS Safety Report 12716944 (Version 1)
Quarter: 2016Q3

REPORT INFORMATION
  Report Type: Spontaneous
  Country: FR (occurrence: FR)
  Receive Date: 20160906
  Receipt Date: 20160906
  Transmission Date: 20161109
  Serious: Yes (Other)
  Sender: FDA-Public Use
  Company Number: FR-AKORN PHARMACEUTICALS-2016AKN00573

PATIENT

DRUGS (1)
  1. ISOTRETINOIN [Suspect]
     Active Substance: ISOTRETINOIN
     Indication: PAPULOPUSTULAR ROSACEA
     Dosage: 0.25 MG/KG, 1X/DAY
     Route: 048

REACTIONS (1)
  - Retinal detachment [Unknown]
